FAERS Safety Report 16236344 (Version 2)
Quarter: 2019Q2

REPORT INFORMATION
  Report Type: Spontaneous
  Country: DE (occurrence: DE)
  Receive Date: 20190425
  Receipt Date: 20190521
  Transmission Date: 20190711
  Serious: Yes (Hospitalization, Other)
  Sender: FDA-Public Use
  Company Number: DE-SA-2019SA107041

PATIENT
  Age: 71 Year
  Sex: Male

DRUGS (3)
  1. CLOPIDOGREL ZENTIVA [Suspect]
     Active Substance: CLOPIDOGREL BISULFATE
     Indication: CEREBROVASCULAR ACCIDENT PROPHYLAXIS
     Dosage: UNK UNK, UNK
     Route: 065
     Dates: start: 201505, end: 201810
  2. ASPIRIN. [Concomitant]
     Active Substance: ASPIRIN
     Dosage: UNK
  3. CLOPIDOGREL ZENTIVA [Suspect]
     Active Substance: CLOPIDOGREL BISULFATE
     Indication: MACROANGIOPATHY

REACTIONS (8)
  - Drug ineffective [Unknown]
  - Platelet aggregation abnormal [Unknown]
  - Dysmetria [Unknown]
  - Cerebral ischaemia [Unknown]
  - Psychomotor retardation [Unknown]
  - Facial paresis [Unknown]
  - Aphasia [Unknown]
  - Cerebrovascular accident [Unknown]

NARRATIVE: CASE EVENT DATE: 20181018
